FAERS Safety Report 23223078 (Version 1)
Quarter: 2023Q4

REPORT INFORMATION
  Report Type: Spontaneous
  Country: US (occurrence: US)
  Receive Date: 20231123
  Receipt Date: 20231123
  Transmission Date: 20240110
  Serious: Yes (Other)
  Sender: FDA-Public Use
  Company Number: US-009507513-2311USA006354

PATIENT
  Age: 34 Year
  Sex: Male

DRUGS (4)
  1. TEMODAR [Suspect]
     Active Substance: TEMOZOLOMIDE
     Indication: Anaplastic thyroid cancer
     Dosage: FOR 2 YEARS
  2. TEMODAR [Suspect]
     Active Substance: TEMOZOLOMIDE
     Indication: Brain cancer metastatic
  3. DOXORUBICIN [Concomitant]
     Active Substance: DOXORUBICIN
     Indication: Anaplastic thyroid cancer
     Dosage: 6-8 WEEKS
  4. DOXORUBICIN [Concomitant]
     Active Substance: DOXORUBICIN
     Indication: Brain cancer metastatic

REACTIONS (2)
  - Cytopenia [Unknown]
  - Product use in unapproved indication [Unknown]
